FAERS Safety Report 25832002 (Version 1)
Quarter: 2025Q3

REPORT INFORMATION
  Report Type: Spontaneous
  Country: US (occurrence: US)
  Receive Date: 20250922
  Receipt Date: 20250922
  Transmission Date: 20251020
  Serious: No
  Sender: COSETTE PHARMACEUTICALS INC
  Company Number: US-COSETTE-CP2025US000909

PATIENT
  Age: 53 Year
  Sex: Female

DRUGS (1)
  1. VYLEESI [Suspect]
     Active Substance: BREMELANOTIDE ACETATE
     Indication: Product used for unknown indication
     Route: 058
     Dates: start: 20250829, end: 20250906

REACTIONS (2)
  - Nausea [Unknown]
  - Drug ineffective [Unknown]
